FAERS Safety Report 7059239-1 (Version None)
Quarter: 2010Q4

REPORT INFORMATION
  Report Type: 
  Country: None (occurrence: None)
  Receive Date: 20101025
  Receipt Date: 20101014
  Transmission Date: 20110411
  Serious: No
  Sender: FDA-Public Use
  Company Number: US-BIOGENIDEC-2010BI036363

PATIENT
  Age: 56 Year
  Sex: Female

DRUGS (1)
  1. TYSABRI [Suspect]
     Indication: MULTIPLE SCLEROSIS
     Route: 042
     Dates: start: 20091001

REACTIONS (6)
  - BLINDNESS UNILATERAL [None]
  - DEMYELINATION [None]
  - PAIN [None]
  - PAIN IN EXTREMITY [None]
  - PHOTOPSIA [None]
  - VISION BLURRED [None]
